FAERS Safety Report 12534714 (Version 1)
Quarter: 2016Q3

REPORT INFORMATION
  Report Type: Spontaneous
  Country: US (occurrence: None)
  Receive Date: 20160706
  Receipt Date: 20160706
  Transmission Date: 20161109
  Serious: Yes (Life-Threatening, Hospitalization)
  Sender: FDA-Public Use
  Company Number: None

PATIENT
  Age: 36 Year
  Sex: Male
  Weight: 81.65 kg

DRUGS (1)
  1. NEUROMAX PAIN CREAM, 1 ALPHA DIRECT COMPOUNDING [Suspect]
     Active Substance: BACLOFEN\CLONIDINE\DICLOFENAC\GABAPENTIN\KETAMINE\PRILOCAINE
     Indication: MYALGIA
     Route: 061
     Dates: start: 20160620, end: 20160620

REACTIONS (5)
  - Basilar artery occlusion [None]
  - Ischaemic stroke [None]
  - Loss of consciousness [None]
  - Limb discomfort [None]
  - Agitation [None]

NARRATIVE: CASE EVENT DATE: 20160620
